FAERS Safety Report 18493296 (Version 8)
Quarter: 2025Q1

REPORT INFORMATION
  Report Type: Report from Study
  Country: US (occurrence: US)
  Receive Date: 20201111
  Receipt Date: 20250305
  Transmission Date: 20250409
  Serious: Yes (Hospitalization, Other)
  Sender: TAKEDA
  Company Number: US-SHIRE-US202031112

PATIENT
  Age: 4 Year
  Sex: Male
  Weight: 19.5 kg

DRUGS (11)
  1. TEDUGLUTIDE [Suspect]
     Active Substance: TEDUGLUTIDE
     Indication: Short-bowel syndrome
     Dosage: 0.65 MILLIGRAM, QD
     Dates: start: 20200901
  2. TEDUGLUTIDE [Suspect]
     Active Substance: TEDUGLUTIDE
     Dosage: 0.65 MILLIGRAM, QD
     Dates: start: 20200901
  3. TEDUGLUTIDE [Suspect]
     Active Substance: TEDUGLUTIDE
     Dosage: 0.69MG ,DAILY
     Dates: start: 202009, end: 20210426
  4. TEDUGLUTIDE [Suspect]
     Active Substance: TEDUGLUTIDE
     Dosage: 0.69 MILLIGRAM, QD
     Dates: start: 202102
  5. TEDUGLUTIDE [Suspect]
     Active Substance: TEDUGLUTIDE
     Dosage: 0.69 MILLIGRAM, QD
  6. TEDUGLUTIDE [Suspect]
     Active Substance: TEDUGLUTIDE
     Dosage: 0.08 MILLILITER, QD
  7. FERROUS SULFATE [Concomitant]
     Active Substance: FERROUS SULFATE
  8. TUMS [Concomitant]
     Active Substance: CALCIUM CARBONATE
  9. NEOMYCIN SULFATE [Concomitant]
     Active Substance: NEOMYCIN SULFATE
  10. TPN [Concomitant]
     Active Substance: AMINO ACIDS\DEXTROSE\ELECTROLYTES NOS\SOYBEAN OIL
  11. MELATONIN [Concomitant]
     Active Substance: MELATONIN

REACTIONS (9)
  - Device related bacteraemia [Unknown]
  - Pyrexia [Unknown]
  - Complication associated with device [Unknown]
  - Device related sepsis [Unknown]
  - Pain in extremity [Unknown]
  - Haemoglobin decreased [Unknown]
  - Gastrointestinal microorganism overgrowth [Unknown]
  - Product dose omission issue [Unknown]
  - Oropharyngeal pain [Unknown]

NARRATIVE: CASE EVENT DATE: 20200922
